FAERS Safety Report 10678176 (Version 1)
Quarter: 2014Q4

REPORT INFORMATION
  Report Type: Spontaneous
  Country: JP (occurrence: None)
  Receive Date: 20141223
  Receipt Date: 20141223
  Transmission Date: 20150529
  Serious: Yes (Hospitalization)
  Sender: FDA-Public Use
  Company Number: 201412IM007908

PATIENT
  Age: 73 Year
  Sex: Female

DRUGS (2)
  1. PIRESPA (PIRFENIDONE) [Suspect]
     Active Substance: PIRFENIDONE
     Indication: IDIOPATHIC PULMONARY FIBROSIS
     Route: 048
     Dates: start: 20141024, end: 20141121
  2. METOCLOPRAMIDE. [Suspect]
     Active Substance: METOCLOPRAMIDE
     Indication: PROPHYLAXIS
     Route: 048
     Dates: start: 20141024, end: 20141121

REACTIONS (3)
  - Lymphocyte stimulation test positive [None]
  - Drug hypersensitivity [None]
  - Lung disorder [None]

NARRATIVE: CASE EVENT DATE: 20141120
